FAERS Safety Report 12251980 (Version 3)
Quarter: 2016Q3

REPORT INFORMATION
  Report Type: Spontaneous
  Country: US (occurrence: US)
  Receive Date: 20160411
  Receipt Date: 20160722
  Transmission Date: 20161109
  Serious: Yes (Hospitalization, Other)
  Sender: FDA-Public Use
  Company Number: US-BEH-2016060931

PATIENT
  Sex: Female

DRUGS (1)
  1. HIZENTRA [Suspect]
     Active Substance: HUMAN IMMUNOGLOBULIN G
     Indication: PRODUCT USED FOR UNKNOWN INDICATION

REACTIONS (12)
  - Candida infection [Unknown]
  - Nephrolithiasis [Unknown]
  - Diabetes mellitus [Unknown]
  - Thrombosis [Unknown]
  - Asthenia [Unknown]
  - Blood glucose decreased [Unknown]
  - Oropharyngeal blistering [Unknown]
  - Oesophageal mucosal blister [Unknown]
  - Cytomegalovirus infection [Unknown]
  - Cystitis [Unknown]
  - Spinal compression fracture [Unknown]
  - Pneumonia [Unknown]

NARRATIVE: CASE EVENT DATE: 2016
